FAERS Safety Report 6124275-6 (Version None)
Quarter: 2009Q1

REPORT INFORMATION
  Report Type: 
  Country: None (occurrence: None)
  Receive Date: 20090319
  Receipt Date: 20090309
  Transmission Date: 20090719
  Serious: Yes (Hospitalization, Other)
  Sender: FDA-Public Use
  Company Number: PHHY2009FR08728

PATIENT
  Sex: Female

DRUGS (11)
  1. TRILEPTAL [Suspect]
     Indication: EPILEPSY
     Dosage: UNK
     Dates: start: 20060101, end: 20090119
  2. SANMIGRAN [Suspect]
     Indication: MIGRAINE
  3. STABLON [Suspect]
  4. ESOMEPRAZOLE [Suspect]
  5. MEBEVERINE [Suspect]
  6. LEVOTHYROXINE SODIUM [Suspect]
     Dosage: UNK
  7. ATARAX [Concomitant]
  8. TRIATEC [Concomitant]
  9. AVLOCARDYL [Concomitant]
  10. XANAX [Concomitant]
  11. IMOVANE [Concomitant]

REACTIONS (3)
  - BLOOD ALKALINE PHOSPHATASE INCREASED [None]
  - CHOLESTASIS [None]
  - GAMMA-GLUTAMYLTRANSFERASE INCREASED [None]
